FAERS Safety Report 7283925-1 (Version None)
Quarter: 2011Q1

REPORT INFORMATION
  Report Type: 
  Country: None (occurrence: None)
  Receive Date: 20110209
  Receipt Date: 20110128
  Transmission Date: 20110831
  Serious: Yes (Hospitalization)
  Sender: FDA-Public Use
  Company Number: PHHY2011FR07332

PATIENT
  Age: 64 Year
  Sex: Female

DRUGS (5)
  1. ISONIAZID [Suspect]
     Indication: MENINGITIS TUBERCULOUS
  2. PYRAZINAMIDE [Suspect]
     Indication: MENINGITIS TUBERCULOUS
     Dosage: UNK
  3. RIFAMPICIN [Suspect]
     Indication: MENINGITIS TUBERCULOUS
  4. MOXIFLOXACIN [Suspect]
     Indication: MENINGITIS TUBERCULOUS
  5. ETHAMBUTOL HYDROCHLORIDE [Suspect]
     Indication: MENINGITIS TUBERCULOUS

REACTIONS (3)
  - JAUNDICE [None]
  - ACUTE HEPATIC FAILURE [None]
  - DRUG INTOLERANCE [None]
